FAERS Safety Report 21386725 (Version 1)
Quarter: 2022Q3

REPORT INFORMATION
  Report Type: Spontaneous
  Country: US (occurrence: None)
  Receive Date: 20220926
  Receipt Date: 20220926
  Transmission Date: 20221027
  Serious: Yes (Hospitalization)
  Sender: FDA-Public Use
  Company Number: None

PATIENT
  Sex: Male

DRUGS (1)
  1. HUMIRA [Suspect]
     Active Substance: ADALIMUMAB
     Indication: Crohn^s disease
     Dosage: 40MG Q2WKS SUBCUTANEOUS?
     Route: 058

REACTIONS (6)
  - Crohn^s disease [None]
  - Treatment failure [None]
  - Disease complication [None]
  - Liver disorder [None]
  - Therapy interrupted [None]
  - Immunosuppression [None]
